FAERS Safety Report 9167701 (Version 1)
Quarter: 2013Q1

REPORT INFORMATION
  Report Type: Spontaneous
  Country: IT (occurrence: None)
  Receive Date: 20130305
  Receipt Date: 20130305
  Transmission Date: 20140127
  Serious: Yes (Hospitalization)
  Sender: FDA-Public Use
  Company Number: 2013-03249

PATIENT
  Age: 47 Year
  Sex: Female
  Weight: 58 kg

DRUGS (4)
  1. PACLITAXEL [Suspect]
     Indication: OVARIAN CANCER
     Route: 042
     Dates: start: 20130207, end: 20130207
  2. RANITIDINE (RANITIDINE) [Concomitant]
  3. HYDROCORTISONE (HYDROCORTISONE) [Concomitant]
  4. TRIMETON /00072502/ (CHLORPHENAMINE MALATE) [Concomitant]

REACTIONS (4)
  - Respiratory arrest [None]
  - Loss of consciousness [None]
  - Bradycardia [None]
  - Eosinophilia [None]
